FAERS Safety Report 23404361 (Version 1)
Quarter: 2024Q1

REPORT INFORMATION
  Report Type: Spontaneous
  Country: GB (occurrence: GB)
  Receive Date: 20240116
  Receipt Date: 20240116
  Transmission Date: 20240409
  Serious: Yes (Other)
  Sender: FDA-Public Use
  Company Number: None

PATIENT
  Age: 43 Year
  Sex: Female
  Weight: 67 kg

DRUGS (6)
  1. SERTRALINE [Suspect]
     Active Substance: SERTRALINE HYDROCHLORIDE
     Indication: Product used for unknown indication
     Dates: start: 20231113
  2. CODEINE PHOSPHATE [Concomitant]
     Active Substance: CODEINE PHOSPHATE
     Indication: Ill-defined disorder
     Dosage: ONE TO TWO BE TAKEN 4-6 HOURLY IF REQUIRED
     Dates: start: 20230915, end: 20231013
  3. LETROZOLE [Concomitant]
     Active Substance: LETROZOLE
     Indication: Ill-defined disorder
     Dosage: TAKE ONE TABLET ONCE A DAY.
     Dates: start: 20231212
  4. MIRTAZAPINE [Concomitant]
     Active Substance: MIRTAZAPINE
     Indication: Ill-defined disorder
     Dosage: TAKE ONE TABLET AT BEDTIME.
     Dates: start: 20231212
  5. NAPROXEN [Concomitant]
     Active Substance: NAPROXEN
     Indication: Ill-defined disorder
     Dosage: ONE TO BE TAKEN THREE TIMES A DAY,  WITH OR SOO...
     Dates: start: 20230915, end: 20231013
  6. TAMOXIFEN [Concomitant]
     Active Substance: TAMOXIFEN
     Indication: Ill-defined disorder
     Dosage: TAKE ONE TABLET ONCE A DAY.
     Dates: start: 20230912, end: 20231212

REACTIONS (1)
  - Strangury [Not Recovered/Not Resolved]

NARRATIVE: CASE EVENT DATE: 20231212
